FAERS Safety Report 21006570 (Version 1)
Quarter: 2022Q2

REPORT INFORMATION
  Report Type: Spontaneous
  Country: GB (occurrence: GB)
  Receive Date: 20220624
  Receipt Date: 20220624
  Transmission Date: 20220721
  Serious: Yes (Other)
  Sender: FDA-Public Use
  Company Number: None

PATIENT
  Age: 38 Year
  Sex: Male
  Weight: 80 kg

DRUGS (15)
  1. TRAMADOL HYDROCHLORIDE [Suspect]
     Active Substance: TRAMADOL HYDROCHLORIDE
     Indication: Ill-defined disorder
     Dosage: UNK
     Route: 065
     Dates: start: 20220614
  2. TRAMADOL HYDROCHLORIDE [Suspect]
     Active Substance: TRAMADOL HYDROCHLORIDE
     Dosage: UNK
     Route: 065
  3. TRAMADOL HYDROCHLORIDE [Suspect]
     Active Substance: TRAMADOL HYDROCHLORIDE
     Dosage: 2 DOSAGE FORM, EVERY 4 HRS
     Route: 065
     Dates: start: 20220609
  4. CLINDAMYCIN [Concomitant]
     Active Substance: CLINDAMYCIN
     Indication: Product used for unknown indication
     Dosage: UNK
     Route: 065
     Dates: start: 20201029
  5. COLCHICINE [Concomitant]
     Active Substance: COLCHICINE
     Dosage: 1 DOSAGE FORM, 2/DAY
     Route: 065
     Dates: start: 20220305
  6. DULOXETINE HYDROCHLORIDE [Concomitant]
     Active Substance: DULOXETINE HYDROCHLORIDE
     Dosage: 1 DOSAGE FORM, 1/DAY
     Route: 065
     Dates: start: 20210316, end: 20220512
  7. DIAZEPAM [Concomitant]
     Active Substance: DIAZEPAM
     Dosage: 2 DOSAGE FORM, 1/DAY
     Route: 065
     Dates: start: 20220609
  8. DULOXETINE [Concomitant]
     Active Substance: DULOXETINE
     Dosage: 1 DOSAGE FORM, 1/DAY
     Route: 065
     Dates: start: 20210316
  9. ETORICOXIB [Concomitant]
     Active Substance: ETORICOXIB
     Dosage: 1 DOSAGE FORM, 1/DAY
     Route: 065
     Dates: start: 20210316
  10. FEBUXOSTAT [Concomitant]
     Active Substance: FEBUXOSTAT
     Dosage: 1 DOSAGE FORM, 1/DAY
     Route: 065
     Dates: start: 20210316
  11. NYSTATIN [Concomitant]
     Active Substance: NYSTATIN
     Dosage: 1 DOSAGE FORM, 4/DAY
     Route: 065
     Dates: start: 20220428, end: 20220505
  12. OMEPRAZOLE [Concomitant]
     Active Substance: OMEPRAZOLE
     Dosage: 2 DOSAGE FORM, 1/DAY
     Route: 065
     Dates: start: 20211007
  13. ORAMORPH SR SUSTAINED RELEASE [Concomitant]
     Active Substance: MORPHINE SULFATE
     Dosage: 5 MILLILITRE, 3/DAY
     Route: 065
     Dates: start: 20211109
  14. PREGABALIN [Concomitant]
     Active Substance: PREGABALIN
     Dosage: 2 DOSAGE FORM, 2/DAY
     Route: 065
     Dates: start: 20220305
  15. MORPHINE SULFATE [Concomitant]
     Active Substance: MORPHINE SULFATE
     Dosage: UNK UNK, 2/DAY
     Route: 065
     Dates: start: 20220305

REACTIONS (2)
  - Electric shock sensation [Recovered/Resolved]
  - Seizure [Unknown]

NARRATIVE: CASE EVENT DATE: 20220614
